FAERS Safety Report 4997778-5 (Version None)
Quarter: 2006Q2

REPORT INFORMATION
  Report Type: 
  Country: None (occurrence: None)
  Receive Date: 20060508
  Receipt Date: 20060423
  Transmission Date: 20061013
  Serious: Yes (Other)
  Sender: FDA-Public Use
  Company Number: 2006054907

PATIENT
  Sex: Female

DRUGS (1)
  1. SUTENT [Suspect]
     Indication: ILL-DEFINED DISORDER
     Dosage: (50 MG, CYCLICAL)

REACTIONS (6)
  - DIARRHOEA [None]
  - DYSGEUSIA [None]
  - ORAL DISCOMFORT [None]
  - PAIN [None]
  - SKIN FISSURES [None]
  - TONGUE DISORDER [None]
